FAERS Safety Report 14642593 (Version 1)
Quarter: 2018Q1

REPORT INFORMATION
  Report Type: Spontaneous
  Country: US (occurrence: US)
  Receive Date: 20180315
  Receipt Date: 20180315
  Transmission Date: 20180509
  Serious: Yes (Disabling, Other)
  Sender: FDA-Public Use
  Company Number: None

PATIENT
  Age: 62 Year
  Sex: Female
  Weight: 86.18 kg

DRUGS (1)
  1. HARVONI [Suspect]
     Active Substance: LEDIPASVIR\SOFOSBUVIR
     Indication: HEPATITIS C
     Route: 048
     Dates: start: 20160826, end: 20161112

REACTIONS (12)
  - Fatigue [None]
  - Bone pain [None]
  - Lymphocytosis [None]
  - Meniere^s disease [None]
  - Insomnia [None]
  - Abnormal clotting factor [None]
  - Systemic lupus erythematosus [None]
  - Migraine [None]
  - Headache [None]
  - Chronic lymphocytic leukaemia [None]
  - Asthenia [None]
  - Arthropathy [None]

NARRATIVE: CASE EVENT DATE: 20161112
